FAERS Safety Report 22530490 (Version 1)
Quarter: 2023Q2

REPORT INFORMATION
  Report Type: Report from Study
  Country: EG (occurrence: EG)
  Receive Date: 20230607
  Receipt Date: 20230607
  Transmission Date: 20230721
  Serious: Yes (Other)
  Sender: FDA-Public Use
  Company Number: EG-002147023-NVSC2023EG127495

PATIENT
  Age: 66 Year
  Sex: Female

DRUGS (2)
  1. KISQALI [Suspect]
     Active Substance: RIBOCICLIB
     Indication: Breast cancer metastatic
     Dosage: 3 DOSAGE FORM, QD (3 TABLETS AT ONCE PERDAY FOR 21 DAYS AND 1 WEEK OFF)
     Route: 048
     Dates: start: 202211, end: 202302
  2. ZANOGLIDE [Concomitant]
     Indication: Diabetes mellitus
     Dosage: UNK, QD (1- HALF TABLET PER DA)
     Route: 048

REACTIONS (3)
  - Metastases to liver [Not Recovered/Not Resolved]
  - Metastases to bone [Not Recovered/Not Resolved]
  - Tumour marker increased [Not Recovered/Not Resolved]

NARRATIVE: CASE EVENT DATE: 20230201
